FAERS Safety Report 25024134 (Version 4)
Quarter: 2025Q2

REPORT INFORMATION
  Report Type: Spontaneous
  Country: US (occurrence: US)
  Receive Date: 20250228
  Receipt Date: 20250429
  Transmission Date: 20250716
  Serious: No
  Sender: PFIZER
  Company Number: US-PFIZER INC-202500042679

PATIENT
  Age: 15 Year
  Sex: Male
  Weight: 59.41 kg

DRUGS (4)
  1. GENOTROPIN [Suspect]
     Active Substance: SOMATROPIN
     Indication: Growth disorder
  2. ANASTROZOLE [Concomitant]
     Active Substance: ANASTROZOLE
     Indication: Blood testosterone
     Dosage: 1 MG, DAILY
  3. ANASTROZOLE [Concomitant]
     Active Substance: ANASTROZOLE
     Indication: Blood oestrogen
  4. ANASTROZOLE [Concomitant]
     Active Substance: ANASTROZOLE
     Indication: Growth retardation

REACTIONS (4)
  - Drug dose omission by device [Unknown]
  - Device breakage [Unknown]
  - Device use error [Unknown]
  - Device physical property issue [Unknown]

NARRATIVE: CASE EVENT DATE: 20250220
